FAERS Safety Report 18344393 (Version 1)
Quarter: 2020Q4

REPORT INFORMATION
  Report Type: Spontaneous
  Country: US (occurrence: US)
  Receive Date: 20201005
  Receipt Date: 20201005
  Transmission Date: 20210114
  Serious: Yes (Hospitalization)
  Sender: FDA-Public Use
  Company Number: None

PATIENT
  Sex: Female
  Weight: 86.13 kg

DRUGS (1)
  1. TEMOZOLOMIDE. [Suspect]
     Active Substance: TEMOZOLOMIDE
     Indication: GLIOBLASTOMA
     Dosage: ?          OTHER FREQUENCY:DAILY FOR 5 DAYS;?
     Route: 048
     Dates: start: 20200225

REACTIONS (1)
  - Hospitalisation [None]
